FAERS Safety Report 12227598 (Version 1)
Quarter: 2016Q2

REPORT INFORMATION
  Report Type: Spontaneous
  Country: IT (occurrence: IT)
  Receive Date: 20160401
  Receipt Date: 20160401
  Transmission Date: 20160815
  Serious: Yes (Other)
  Sender: FDA-Public Use
  Company Number: IT-HOSPIRA-3222464

PATIENT
  Age: 34 Year
  Sex: Male

DRUGS (1)
  1. EPSOCLAR [Suspect]
     Active Substance: HEPARIN SODIUM
     Indication: PULMONARY THROMBOSIS
     Route: 042
     Dates: start: 20160219, end: 20160219

REACTIONS (3)
  - Product packaging confusion [Recovering/Resolving]
  - Coagulation time prolonged [Recovering/Resolving]
  - Incorrect dose administered [Recovering/Resolving]

NARRATIVE: CASE EVENT DATE: 20160219
